FAERS Safety Report 22650369 (Version 1)
Quarter: 2023Q2

REPORT INFORMATION
  Report Type: Spontaneous
  Country: US (occurrence: US)
  Receive Date: 20230628
  Receipt Date: 20230628
  Transmission Date: 20230721
  Serious: No
  Sender: FDA-Public Use
  Company Number: US-MAYNE PHARMA-2023TMD00171

PATIENT
  Sex: Female

DRUGS (3)
  1. IMVEXXY [Suspect]
     Active Substance: ESTRADIOL
     Indication: Vulvovaginal discomfort
     Dosage: 4 ?G, 2X/WEEK
     Route: 067
     Dates: start: 2021, end: 202303
  2. IMVEXXY [Suspect]
     Active Substance: ESTRADIOL
     Indication: Atrophic vulvovaginitis
     Dosage: 4 ?G, 2X/WEEK
     Route: 067
     Dates: start: 202303, end: 202303
  3. IMVEXXY [Suspect]
     Active Substance: ESTRADIOL
     Indication: Vulvovaginal dryness
     Dosage: 4 ?G, 2X/WEEK
     Route: 067
     Dates: start: 202303

REACTIONS (7)
  - Atrophic vulvovaginitis [Not Recovered/Not Resolved]
  - Drug ineffective [Not Recovered/Not Resolved]
  - Vaginal discharge [Recovered/Resolved]
  - Vulvovaginal discomfort [Not Recovered/Not Resolved]
  - Vulvovaginal dryness [Not Recovered/Not Resolved]
  - Product physical issue [Not Recovered/Not Resolved]
  - Product storage error [Unknown]

NARRATIVE: CASE EVENT DATE: 20210101
